FAERS Safety Report 17030891 (Version 1)
Quarter: 2019Q4

REPORT INFORMATION
  Report Type: Spontaneous
  Country: CA (occurrence: CA)
  Receive Date: 20191114
  Receipt Date: 20191114
  Transmission Date: 20200122
  Serious: Yes (Other)
  Sender: FDA-Public Use
  Company Number: CA-BAYER-2019-199720

PATIENT
  Age: 41 Year
  Sex: Female
  Weight: 58 kg

DRUGS (1)
  1. KYLEENA [Suspect]
     Active Substance: LEVONORGESTREL
     Dosage: 17.5 MCG/24HR, CONT
     Route: 015

REACTIONS (10)
  - Depressed mood [Recovering/Resolving]
  - Sleep disorder [Recovering/Resolving]
  - Vulvovaginal pruritus [Recovering/Resolving]
  - Abnormal dreams [Recovering/Resolving]
  - Migraine [Recovering/Resolving]
  - Night sweats [Recovering/Resolving]
  - Mood swings [Recovering/Resolving]
  - Suicidal ideation [Recovering/Resolving]
  - Anger [Recovering/Resolving]
  - Impatience [Recovering/Resolving]
